FAERS Safety Report 22279545 (Version 8)
Quarter: 2025Q2

REPORT INFORMATION
  Report Type: Report from Study
  Country: US (occurrence: US)
  Receive Date: 20230503
  Receipt Date: 20250422
  Transmission Date: 20250716
  Serious: Yes (Other)
  Sender: TAKEDA
  Company Number: US-TAKEDA-2023TUS041542

PATIENT
  Sex: Female
  Weight: 67 kg

DRUGS (7)
  1. BRIGATINIB [Suspect]
     Active Substance: BRIGATINIB
     Indication: Bronchial carcinoma
     Dosage: 180 MILLIGRAM, QD
     Dates: start: 202302
  2. BRIGATINIB [Suspect]
     Active Substance: BRIGATINIB
     Dosage: 90 MILLIGRAM, QD
     Dates: start: 20230307
  3. BRIGATINIB [Suspect]
     Active Substance: BRIGATINIB
     Dosage: 180 MILLIGRAM, QD
  4. BRIGATINIB [Suspect]
     Active Substance: BRIGATINIB
     Dosage: 180 MILLIGRAM, QD
  5. BRIGATINIB [Suspect]
     Active Substance: BRIGATINIB
     Dosage: 180 MILLIGRAM, QD
  6. BRIGATINIB [Suspect]
     Active Substance: BRIGATINIB
     Dosage: 180 MILLIGRAM, QD
  7. BRIGATINIB [Suspect]
     Active Substance: BRIGATINIB
     Dosage: 180 MILLIGRAM, QD

REACTIONS (14)
  - Hepatic neoplasm [Unknown]
  - Renal neoplasm [Unknown]
  - Brain neoplasm [Unknown]
  - Metastases to liver [Unknown]
  - Skin disorder [Recovered/Resolved]
  - Eczema [Unknown]
  - Psoriasis [Unknown]
  - Sensitive skin [Unknown]
  - Weight decreased [Unknown]
  - Photosensitivity reaction [Unknown]
  - Rash [Unknown]
  - Myalgia [Unknown]
  - Diarrhoea [Unknown]
  - Asthenia [Unknown]
